FAERS Safety Report 8776828 (Version 3)
Quarter: 2017Q4

REPORT INFORMATION
  Report Type: Spontaneous
  Country: GB (occurrence: GB)
  Receive Date: 20120911
  Receipt Date: 20171107
  Transmission Date: 20180321
  Serious: Yes (Hospitalization)
  Sender: FDA-Public Use
  Company Number: GB-TEVA-356863ISR

PATIENT
  Age: 34 Year
  Sex: Male
  Weight: 80 kg

DRUGS (5)
  1. SALBUTAMOL [Concomitant]
     Active Substance: ALBUTEROL
  2. LAMOTRIGINE. [Suspect]
     Active Substance: LAMOTRIGINE
     Indication: EPILEPSY
     Route: 048
     Dates: start: 20120209, end: 20120409
  3. KEPPRA [Concomitant]
     Active Substance: LEVETIRACETAM
     Dosage: BEEN ON FOR ONE YEAR
  4. LAMOTRIGINE. [Suspect]
     Active Substance: LAMOTRIGINE
     Indication: GENERALISED TONIC-CLONIC SEIZURE
  5. PARACETAMOL [Concomitant]
     Active Substance: ACETAMINOPHEN

REACTIONS (33)
  - Vomiting [Recovered/Resolved]
  - Colitis [Recovered/Resolved]
  - Oropharyngeal pain [Recovered/Resolved]
  - Lymphadenopathy [Recovered/Resolved]
  - Conjunctival irritation [Recovered/Resolved]
  - Lymphadenopathy [Recovered/Resolved]
  - Headache [Recovered/Resolved]
  - Rash erythematous [Recovered/Resolved]
  - Diarrhoea haemorrhagic [Recovered/Resolved]
  - Influenza like illness [Recovered/Resolved]
  - Swelling face [Recovered/Resolved]
  - Angioedema [Recovered/Resolved]
  - Drug reaction with eosinophilia and systemic symptoms [Recovered/Resolved]
  - Alanine aminotransferase increased [Recovered/Resolved]
  - Rash pruritic [Recovered/Resolved]
  - Diarrhoea [Recovered/Resolved]
  - Eosinophil count increased [Recovered/Resolved]
  - Drug-induced liver injury [Recovered/Resolved]
  - Feeling of body temperature change [Recovered/Resolved]
  - Rash maculo-papular [Recovered/Resolved]
  - Abdominal pain [Recovered/Resolved]
  - Mucosal ulceration [Recovered/Resolved]
  - Body temperature increased [Recovered/Resolved]
  - Pain [Recovered/Resolved]
  - Eyelid oedema [Recovered/Resolved]
  - Liver function test abnormal [Recovering/Resolving]
  - Blood alkaline phosphatase increased [Recovered/Resolved]
  - Pyrexia [Recovered/Resolved]
  - Nausea [Recovered/Resolved]
  - Odynophagia [Recovered/Resolved]
  - Fatigue [Recovered/Resolved]
  - Arthralgia [Recovered/Resolved]
  - Rash erythematous [Recovering/Resolving]

NARRATIVE: CASE EVENT DATE: 20120407
